FAERS Safety Report 15380318 (Version 1)
Quarter: 2018Q3

REPORT INFORMATION
  Report Type: Spontaneous
  Country: US (occurrence: US)
  Receive Date: 20180913
  Receipt Date: 20180913
  Transmission Date: 20181010
  Serious: Yes (Other)
  Sender: FDA-Public Use
  Company Number: US-ASTELLAS-2017US050362

PATIENT
  Sex: Male

DRUGS (1)
  1. XTANDI [Suspect]
     Active Substance: ENZALUTAMIDE
     Indication: PROSTATE CANCER METASTATIC
     Route: 065
     Dates: start: 201707

REACTIONS (8)
  - Decreased appetite [Unknown]
  - Dizziness [Unknown]
  - Arthralgia [Unknown]
  - Asthenia [Unknown]
  - Back pain [Unknown]
  - Weight decreased [Unknown]
  - Fatigue [Unknown]
  - Inappropriate schedule of drug administration [Unknown]
